FAERS Safety Report 6744563-X (Version None)
Quarter: 2010Q2

REPORT INFORMATION
  Report Type: 
  Country: None (occurrence: None)
  Receive Date: 20100527
  Receipt Date: 20100518
  Transmission Date: 20101027
  Serious: Yes (Disabling)
  Sender: FDA-Public Use
  Company Number: PHHY2010US30644

PATIENT
  Sex: Female

DRUGS (3)
  1. RITALIN LA [Suspect]
     Indication: ATTENTION DEFICIT/HYPERACTIVITY DISORDER
     Dosage: UNK
     Route: 048
     Dates: start: 20090601
  2. RITALIN LA [Suspect]
     Dosage: UNK
     Route: 048
     Dates: start: 20100201
  3. RITALIN LA [Suspect]
     Dosage: 20 MG, QD
     Route: 048
     Dates: start: 20100324

REACTIONS (1)
  - TREMOR [None]
